FAERS Safety Report 25095866 (Version 1)
Quarter: 2025Q1

REPORT INFORMATION
  Report Type: Spontaneous
  Country: US (occurrence: US)
  Receive Date: 20250319
  Receipt Date: 20250319
  Transmission Date: 20250409
  Serious: No
  Sender: TARO
  Company Number: US-TARO PHARMACEUTICALS USA INC.-2024TAR00653

PATIENT

DRUGS (3)
  1. TRETINOIN [Suspect]
     Active Substance: TRETINOIN
     Indication: Skin disorder
     Dosage: UNK, OD, SIZE OF A PEA, IN EVENING, FACE AND NECK
     Route: 061
  2. VITAMINS [Concomitant]
     Active Substance: VITAMINS
     Indication: Product used for unknown indication
     Route: 065
  3. TRAZODONE [Concomitant]
     Active Substance: TRAZODONE HYDROCHLORIDE
     Indication: Sleep disorder
     Route: 065

REACTIONS (2)
  - Dry skin [Not Recovered/Not Resolved]
  - Product use in unapproved indication [Unknown]
